FAERS Safety Report 6795080-2 (Version None)
Quarter: 2010Q2

REPORT INFORMATION
  Report Type: 
  Country: None (occurrence: None)
  Receive Date: 20100625
  Receipt Date: 20100616
  Transmission Date: 20101027
  Serious: Yes (Congenital Anomaly, Other)
  Sender: FDA-Public Use
  Company Number: PHBS2009NL00769

PATIENT
  Sex: Female
  Weight: 2.525 kg

DRUGS (1)
  1. METOPROLOL TARTRATE [Suspect]
     Route: 064

REACTIONS (6)
  - ATRIAL SEPTAL DEFECT [None]
  - BRADYCARDIA [None]
  - CONDUCTION DISORDER [None]
  - DRUG EXPOSURE DURING PREGNANCY [None]
  - GENE MUTATION [None]
  - LONG QT SYNDROME [None]
